FAERS Safety Report 9042864 (Version 1)
Quarter: 2013Q1

REPORT INFORMATION
  Report Type: Report from Study
  Country: US (occurrence: US)
  Receive Date: 20130129
  Receipt Date: 20130129
  Transmission Date: 20140127
  Serious: No
  Sender: FDA-Public Use
  Company Number: US-ABBOTT-12P-163-0912305-00

PATIENT
  Age: 34 Year
  Sex: Female

DRUGS (10)
  1. HUMIRA 40 MG/0.8 ML PEN [Suspect]
     Indication: PSORIASIS
     Dates: start: 20120215, end: 20120215
  2. HUMIRA 40 MG/0.8 ML PEN [Suspect]
     Indication: PSORIASIS
     Dates: start: 20120227, end: 20120227
  3. HUMIRA 40 MG/0.8 ML PEN [Suspect]
  4. TRIAMCINOLONE [Concomitant]
     Indication: PSORIASIS
     Route: 061
  5. ACETONIDE [Concomitant]
     Indication: PSORIASIS
     Route: 061
  6. HAYLOG [Concomitant]
     Indication: PSORIASIS
     Dosage: 2-3 TIMES DAILY
     Route: 061
  7. KLONOPIN [Concomitant]
     Indication: PRODUCT USED FOR UNKNOWN INDICATION
  8. VISTARIL [Concomitant]
     Indication: PRODUCT USED FOR UNKNOWN INDICATION
  9. ELMIRON [Concomitant]
     Indication: PRODUCT USED FOR UNKNOWN INDICATION
  10. PROTONICS [Concomitant]
     Indication: PRODUCT USED FOR UNKNOWN INDICATION

REACTIONS (1)
  - Vulvovaginal mycotic infection [Not Recovered/Not Resolved]
